FAERS Safety Report 12238280 (Version 1)
Quarter: 2016Q2

REPORT INFORMATION
  Report Type: Spontaneous
  Country: US (occurrence: None)
  Receive Date: 20160404
  Receipt Date: 20160404
  Transmission Date: 20160815
  Serious: No
  Sender: FDA-Public Use
  Company Number: None

PATIENT
  Age: 68 Year
  Sex: Female

DRUGS (1)
  1. IBANDRONATE 3MG/3ML PFS GONENTECH [Suspect]
     Active Substance: IBANDRONATE SODIUM
     Indication: OSTEOPOROSIS
     Dosage: 3MG Q 3 MONTHS IV
     Route: 042
     Dates: start: 20160107, end: 20160401

REACTIONS (1)
  - Sleep disorder [None]

NARRATIVE: CASE EVENT DATE: 20160203
